FAERS Safety Report 9981649 (Version 2)
Quarter: 2014Q1

REPORT INFORMATION
  Report Type: Report from Study
  Country: PR (occurrence: PR)
  Receive Date: 20140307
  Receipt Date: 20140307
  Transmission Date: 20141002
  Serious: No
  Sender: FDA-Public Use
  Company Number: PR-ABBVIE-13P-131-1167028-00

PATIENT
  Sex: Female
  Weight: 84.44 kg

DRUGS (11)
  1. HUMIRA [Suspect]
     Indication: PRODUCT USED FOR UNKNOWN INDICATION
     Route: 058
     Dates: end: 201311
  2. HUMIRA [Suspect]
     Dates: start: 201311
  3. INSULIN [Concomitant]
     Indication: DIABETES MELLITUS
     Route: 058
  4. INSULIN [Concomitant]
     Indication: DIABETES MELLITUS
     Route: 058
  5. FOLIC ACID [Concomitant]
     Indication: RHEUMATOID ARTHRITIS
     Route: 048
  6. PRAVASTATIN [Concomitant]
     Indication: BLOOD CHOLESTEROL
     Route: 048
  7. FUROSEMIDE [Concomitant]
     Indication: HYPERTENSION
     Route: 048
  8. COLPIDOGREL [Concomitant]
     Indication: ANTICOAGULANT THERAPY
  9. UNKNOWN MEDICATION [Concomitant]
     Indication: PAIN
     Route: 048
  10. IRBESARTAN [Concomitant]
     Route: 048
  11. LANSOPRAZOLE [Concomitant]
     Indication: ANTACID THERAPY
     Route: 048

REACTIONS (1)
  - Nasopharyngitis [Recovered/Resolved]
